FAERS Safety Report 8921494 (Version 2)
Quarter: 2012Q4

REPORT INFORMATION
  Report Type: 
  Country: US (occurrence: US)
  Receive Date: 20121121
  Receipt Date: 20121130
  Transmission Date: 20130627
  Serious: No
  Sender: FDA-Public Use
  Company Number: US-009507513-1211USA007994

PATIENT
  Age: 50 Year
  Sex: Female
  Weight: 61.22 kg

DRUGS (1)
  1. CLARITIN [Suspect]
     Indication: THROAT IRRITATION
     Dosage: UNK, qd
     Route: 048
     Dates: start: 20120823, end: 20120830

REACTIONS (1)
  - Drug ineffective [Unknown]
